FAERS Safety Report 7904653-2 (Version None)
Quarter: 2011Q4

REPORT INFORMATION
  Report Type: 
  Country: None (occurrence: None)
  Receive Date: 20111109
  Receipt Date: 20111028
  Transmission Date: 20120403
  Serious: Yes (Congenital Anomaly)
  Sender: FDA-Public Use
  Company Number: US-GLAXOSMITHKLINE-A0950676A

PATIENT

DRUGS (8)
  1. METHADONE HCL [Concomitant]
     Route: 064
  2. INSULIN [Concomitant]
     Indication: GESTATIONAL DIABETES
     Route: 064
  3. UNSPECIFIED ANTIBIOTIC [Concomitant]
     Route: 064
  4. PAXIL [Suspect]
     Indication: PRODUCT USED FOR UNKNOWN INDICATION
     Route: 064
  5. ALDOMET [Concomitant]
     Indication: BLOOD PRESSURE INCREASED
     Route: 064
  6. LABETALOL HCL [Concomitant]
     Indication: BLOOD PRESSURE INCREASED
     Route: 064
  7. GLYBURIDE [Concomitant]
     Indication: GESTATIONAL DIABETES
     Route: 064
  8. RISPERIDONE [Concomitant]
     Route: 064

REACTIONS (6)
  - CLEFT PALATE [None]
  - MACROCEPHALY [None]
  - MICROGNATHIA [None]
  - FOETAL EXPOSURE DURING PREGNANCY [None]
  - CRANIOSYNOSTOSIS [None]
  - DYSMORPHISM [None]
